FAERS Safety Report 17240525 (Version 1)
Quarter: 2020Q1

REPORT INFORMATION
  Report Type: Spontaneous
  Country: GB (occurrence: GB)
  Receive Date: 20200107
  Receipt Date: 20200107
  Transmission Date: 20200409
  Serious: Yes (Other)
  Sender: FDA-Public Use
  Company Number: GB-TEVA-2019-GB-1162299

PATIENT
  Age: 57 Year
  Sex: Female
  Weight: 159 kg

DRUGS (17)
  1. CETRABEN EMOLLIENT CREAM [Concomitant]
     Dosage: APPLY UP TO 3-4 TIMES A DAY TO DRY SKIN AS REQU...
     Dates: start: 20190531
  2. GABAPENTIN. [Concomitant]
     Active Substance: GABAPENTIN
     Dosage: 6 DF
     Dates: start: 20190531
  3. FERROUS SULFATE. [Concomitant]
     Active Substance: FERROUS SULFATE
     Dosage: 1 DF
     Dates: start: 20190531
  4. SALBUTAMOL [Concomitant]
     Active Substance: ALBUTEROL
     Dosage: 2 DF
     Route: 055
     Dates: start: 20191001, end: 20191029
  5. BENDROFLUMETHIAZIDE [Concomitant]
     Active Substance: BENDROFLUMETHIAZIDE
     Dosage: 1 DF EACH MORNING
     Dates: start: 20190531
  6. OXYNORM [Concomitant]
     Active Substance: OXYCODONE HYDROCHLORIDE
     Dosage: 10 ML TO BE TAKEN 2-4 TIMES A DAY
     Dates: start: 20190531
  7. EPILIM [Concomitant]
     Active Substance: VALPROATE SODIUM
     Dosage: 4 DF
     Dates: start: 20191114
  8. PARACETAMOL [Concomitant]
     Active Substance: ACETAMINOPHEN
     Dosage: 8 DF
     Dates: start: 20190531
  9. CITALOPRAM [Concomitant]
     Active Substance: CITALOPRAM HYDROBROMIDE
     Indication: ANXIETY
     Dosage: 1 DF EACH MORNING
     Dates: start: 20190531
  10. DERMOL [Concomitant]
     Active Substance: BENZALKONIUM CHLORIDE\CHLORHEXIDINE HYDROCHLORIDE\ISOPROPYL MYRISTATE\PARAFFIN
     Dosage: USE AS DIRECTED
     Dates: start: 20191203
  11. LANSOPRAZOLE. [Concomitant]
     Active Substance: LANSOPRAZOLE
     Dosage: 1 DF
     Dates: start: 20190531
  12. RIVAROXABAN [Concomitant]
     Active Substance: RIVAROXABAN
     Dosage: 1 DF
     Dates: start: 20190531
  13. DOXYCYCLINE. [Suspect]
     Active Substance: DOXYCYCLINE
     Dosage: TWO NOW THEN ONE DAILY
     Dates: start: 20191202, end: 20191202
  14. SODIUM VALPROATE [Concomitant]
     Active Substance: VALPROATE SODIUM
     Dosage: 4 DF
     Dates: start: 20190531
  15. DOXYCYCLINE. [Suspect]
     Active Substance: DOXYCYCLINE
     Indication: WOUND INFECTION
     Dosage: 100 MG
     Dates: start: 20191203
  16. LONGTEC [Concomitant]
     Active Substance: OXYCODONE HYDROCHLORIDE
     Dosage: 2 DF
     Dates: start: 20190813
  17. DAPAGLIFLOZIN. [Concomitant]
     Active Substance: DAPAGLIFLOZIN
     Dosage: 1 DF
     Dates: start: 20190531

REACTIONS (1)
  - Palpitations [Recovered/Resolved]

NARRATIVE: CASE EVENT DATE: 20191203
